FAERS Safety Report 4837510-9 (Version None)
Quarter: 2005Q4

REPORT INFORMATION
  Report Type: 
  Country: None (occurrence: None)
  Receive Date: 20051128
  Receipt Date: 20051122
  Transmission Date: 20060501
  Serious: Yes (Hospitalization)
  Sender: FDA-Public Use
  Company Number: FR-GLAXOSMITHKLINE-B0401360A

PATIENT
  Age: 3 Year
  Sex: Female
  Weight: 13 kg

DRUGS (4)
  1. CLAMOXYL [Suspect]
     Dosage: 250MG SINGLE DOSE
     Route: 048
     Dates: start: 20051017, end: 20051017
  2. CIBLOR [Suspect]
     Dosage: 375MG THREE TIMES PER DAY
     Route: 048
     Dates: start: 20051011, end: 20051017
  3. DOLIPRANE [Concomitant]
     Dosage: 200MG FOUR TIMES PER DAY
     Route: 048
     Dates: start: 20051011, end: 20051017
  4. ADVIL [Concomitant]
     Dosage: 100MG THREE TIMES PER DAY
     Route: 048
     Dates: start: 20051011, end: 20051017

REACTIONS (4)
  - FACE OEDEMA [None]
  - HEPATIC FUNCTION ABNORMAL [None]
  - INFECTIOUS MONONUCLEOSIS [None]
  - RASH [None]
